APPROVED DRUG PRODUCT: DUETACT
Active Ingredient: GLIMEPIRIDE; PIOGLITAZONE HYDROCHLORIDE
Strength: 2MG;30MG
Dosage Form/Route: TABLET;ORAL
Application: N021925 | Product #001 | TE Code: AB
Applicant: TAKEDA PHARMACEUTICALS USA INC
Approved: Jul 28, 2006 | RLD: Yes | RS: Yes | Type: RX

PATENTS:
Patent 8071130 | Expires: Jun 8, 2028
Patent 7700128 | Expires: Jan 30, 2027